FAERS Safety Report 15279494 (Version 1)
Quarter: 2018Q3

REPORT INFORMATION
  Report Type: Spontaneous
  Country: US (occurrence: US)
  Receive Date: 20180815
  Receipt Date: 20180815
  Transmission Date: 20181010
  Serious: No
  Sender: FDA-Public Use
  Company Number: US-PFIZER INC-2018318428

PATIENT
  Age: 37 Year
  Sex: Female
  Weight: 60.4 kg

DRUGS (1)
  1. DEPO?MEDROL [Suspect]
     Active Substance: METHYLPREDNISOLONE ACETATE
     Indication: CHRONIC OBSTRUCTIVE PULMONARY DISEASE
     Dosage: 80 MG, UNK
     Route: 042
     Dates: start: 20180806, end: 20180806

REACTIONS (4)
  - Blood glucose increased [Unknown]
  - Blood glucose fluctuation [Unknown]
  - Incorrect route of drug administration [Recovered/Resolved]
  - Product use in unapproved indication [Recovered/Resolved]

NARRATIVE: CASE EVENT DATE: 20180806
